FAERS Safety Report 13378235 (Version 2)
Quarter: 2018Q1

REPORT INFORMATION
  Report Type: Spontaneous
  Country: US (occurrence: US)
  Receive Date: 20170328
  Receipt Date: 20180131
  Transmission Date: 20180508
  Serious: Yes (Hospitalization, Other)
  Sender: FDA-Public Use
  Company Number: US-MYLANLABS-2017M1018899

PATIENT
  Age: 47 Year
  Sex: Male

DRUGS (1)
  1. CLOZAPINE. [Suspect]
     Active Substance: CLOZAPINE
     Indication: SCHIZOPHRENIA
     Dosage: UNK

REACTIONS (9)
  - Tachycardia [Not Recovered/Not Resolved]
  - Confusional state [Recovered/Resolved]
  - Priapism [Recovered/Resolved]
  - Blood creatine phosphokinase increased [Recovered/Resolved]
  - Hyperhidrosis [Not Recovered/Not Resolved]
  - Muscle rigidity [Not Recovered/Not Resolved]
  - Penile pain [Recovered/Resolved]
  - Antipsychotic drug level above therapeutic [Unknown]
  - Pyrexia [Recovered/Resolved]
